FAERS Safety Report 13601740 (Version 1)
Quarter: 2017Q2

REPORT INFORMATION
  Report Type: Spontaneous
  Country: MX (occurrence: MX)
  Receive Date: 20170601
  Receipt Date: 20170601
  Transmission Date: 20170830
  Serious: Yes (Death)
  Sender: FDA-Public Use
  Company Number: MX-ACTELION-A-CH2017-154368

PATIENT
  Age: 7 Year
  Sex: Female

DRUGS (3)
  1. ZAVESCA [Suspect]
     Active Substance: MIGLUSTAT
     Indication: NIEMANN-PICK DISEASE
     Dosage: 200 MG, OD
     Route: 048
     Dates: start: 201309, end: 20170519
  2. LEVETIRACETAM. [Concomitant]
     Active Substance: LEVETIRACETAM
     Indication: SEIZURE
     Dosage: 60 MG/KG, BID
     Route: 048
     Dates: start: 2014, end: 20170521
  3. CLOBAZAM [Concomitant]
     Active Substance: CLOBAZAM
     Indication: SEIZURE
     Dosage: 0.3 MG/KG, BID
     Route: 048
     Dates: start: 2016, end: 20170521

REACTIONS (1)
  - Respiratory failure [Fatal]
